FAERS Safety Report 9319671 (Version 1)
Quarter: 2013Q2

REPORT INFORMATION
  Report Type: Spontaneous
  Country: US (occurrence: None)
  Receive Date: 20130529
  Receipt Date: 20130529
  Transmission Date: 20140414
  Serious: Yes (Other)
  Sender: FDA-Public Use
  Company Number: None

PATIENT
  Age: 34 Year
  Sex: Female
  Weight: 85.73 kg

DRUGS (1)
  1. MIRENA [Suspect]
     Indication: CONTRACEPTION
     Dosage: SINGLE EVERY 5 YEARS VAG
     Dates: start: 20130131, end: 20130524

REACTIONS (13)
  - Muscle spasms [None]
  - Weight loss poor [None]
  - Palpitations [None]
  - Anxiety [None]
  - Mood altered [None]
  - Personality change [None]
  - Visual acuity reduced [None]
  - Depression suicidal [None]
  - Self-injurious ideation [None]
  - Drug withdrawal syndrome [None]
  - Dizziness [None]
  - Decreased appetite [None]
  - Menorrhagia [None]
